FAERS Safety Report 25575014 (Version 2)
Quarter: 2025Q3

REPORT INFORMATION
  Report Type: Spontaneous
  Country: US (occurrence: US)
  Receive Date: 20250718
  Receipt Date: 20250729
  Transmission Date: 20251020
  Serious: Yes (Other)
  Sender: CSL BEHRING
  Company Number: US-BEH-2025212557

PATIENT
  Sex: Female

DRUGS (2)
  1. HUMAN IMMUNOGLOBULIN G [Suspect]
     Active Substance: HUMAN IMMUNOGLOBULIN G
     Indication: Gestational alloimmune liver disease
     Dosage: 1G/KG QW
     Route: 042
  2. PROLINE [Suspect]
     Active Substance: PROLINE
     Indication: Product used for unknown indication
     Route: 065

REACTIONS (11)
  - Drug-induced liver injury [Unknown]
  - Abdominal pain [Unknown]
  - Back pain [Unknown]
  - Vomiting [Unknown]
  - Diarrhoea [Unknown]
  - Alanine aminotransferase increased [Unknown]
  - Aspartate aminotransferase increased [Unknown]
  - Coagulopathy [Unknown]
  - Cholelithiasis [Unknown]
  - Maternal exposure during pregnancy [Unknown]
  - Off label use [Unknown]
